FAERS Safety Report 16052973 (Version 2)
Quarter: 2020Q4

REPORT INFORMATION
  Report Type: Spontaneous
  Country: GB (occurrence: ES)
  Receive Date: 20190308
  Receipt Date: 20201203
  Transmission Date: 20210113
  Serious: Yes (Hospitalization, Congenital Anomaly, Other)
  Sender: FDA-Public Use
  Company Number: ES-FRESENIUS KABI-FK201902271

PATIENT
  Age: 1 Month
  Sex: Male
  Weight: 1.44 kg

DRUGS (5)
  1. CYCLOPHOSPHAMIDE. [Suspect]
     Active Substance: CYCLOPHOSPHAMIDE
     Indication: PRODUCT USED FOR UNKNOWN INDICATION
     Route: 042
     Dates: start: 20161123, end: 20170125
  2. PERTUZUMAB. [Suspect]
     Active Substance: PERTUZUMAB
     Indication: PRODUCT USED FOR UNKNOWN INDICATION
     Route: 042
     Dates: start: 201702, end: 201704
  3. PACLITAXEL (MANUFACTURER UNKNOWN) [Suspect]
     Active Substance: PACLITAXEL
     Indication: PRODUCT USED FOR UNKNOWN INDICATION
     Route: 064
     Dates: start: 20170125, end: 201703
  4. TRASTUZUMAB. [Suspect]
     Active Substance: TRASTUZUMAB
     Indication: PRODUCT USED FOR UNKNOWN INDICATION
     Route: 065
     Dates: start: 201702, end: 201704
  5. DOXORUBICIN [Suspect]
     Active Substance: DOXORUBICIN
     Indication: PRODUCT USED FOR UNKNOWN INDICATION
     Route: 042
     Dates: start: 20161123, end: 20170125

REACTIONS (7)
  - Right ventricular hypertrophy [Recovered/Resolved]
  - Acute kidney injury [Recovering/Resolving]
  - Foetal exposure during pregnancy [Recovered/Resolved]
  - Cardiomyopathy [Unknown]
  - Oligohydramnios [Recovered/Resolved]
  - Tidal volume decreased [Recovered/Resolved]
  - Pulmonary hypoplasia [Recovering/Resolving]

NARRATIVE: CASE EVENT DATE: 2017
